FAERS Safety Report 9798654 (Version 1)
Quarter: 2014Q1

REPORT INFORMATION
  Report Type: Spontaneous
  Country: US (occurrence: US)
  Receive Date: 20140106
  Receipt Date: 20140106
  Transmission Date: 20141002
  Serious: No
  Sender: FDA-Public Use
  Company Number: US-GILEAD-2010-0029677

PATIENT
  Age: 56 Year
  Sex: Female
  Weight: 77.3 kg

DRUGS (5)
  1. LETAIRIS [Suspect]
     Indication: PULMONARY ARTERIAL HYPERTENSION
     Route: 048
     Dates: start: 20081219
  2. ASA [Concomitant]
  3. TORSEMIDE [Concomitant]
  4. GLUCOPHAGE [Concomitant]
  5. LIPITOR [Concomitant]

REACTIONS (2)
  - Fatigue [Unknown]
  - Oedema peripheral [Unknown]
